FAERS Safety Report 11340466 (Version 1)
Quarter: 2015Q3

REPORT INFORMATION
  Report Type: Spontaneous
  Country: US (occurrence: None)
  Receive Date: 20150803
  Receipt Date: 20150803
  Transmission Date: 20151125
  Serious: Yes (Hospitalization)
  Sender: FDA-Public Use
  Company Number: IPC201507-000481

PATIENT
  Age: 36 Year
  Sex: Female

DRUGS (6)
  1. PREDNISONE. [Concomitant]
     Active Substance: PREDNISONE
  2. VANCOMYCIN [Concomitant]
     Active Substance: VANCOMYCIN
  3. PIPERACILLIN AND TAZOBACTAM [Concomitant]
     Active Substance: PIPERACILLIN SODIUM\TAZOBACTAM SODIUM
  4. METHYLPREDNISOLONE. [Concomitant]
     Active Substance: METHYLPREDNISOLONE
  5. MYCOPHENOLATE MOFETIL. [Concomitant]
     Active Substance: MYCOPHENOLATE MOFETIL
  6. HYDROXYCHLOROQUINE SULFATE (HYDROXYCHLOROQUINE SULFATE) (HYDROXYCHLOROQUINE SULFATE) [Suspect]
     Active Substance: HYDROXYCHLOROQUINE SULFATE

REACTIONS (9)
  - Proteinuria [None]
  - Renal impairment [None]
  - Blood creatinine increased [None]
  - Metabolic acidosis [None]
  - Haemodialysis [None]
  - Glomerulosclerosis [None]
  - Thrombocytopenia [None]
  - Renal tubular necrosis [None]
  - Azotaemia [None]
